FAERS Safety Report 19241812 (Version 1)
Quarter: 2021Q2

REPORT INFORMATION
  Report Type: Spontaneous
  Country: US (occurrence: US)
  Receive Date: 20210511
  Receipt Date: 20210511
  Transmission Date: 20210717
  Serious: No
  Sender: FDA-Public Use
  Company Number: None

PATIENT
  Age: 37 Year
  Sex: Male
  Weight: 91.76 kg

DRUGS (3)
  1. BENZTROPINE. [Suspect]
     Active Substance: BENZTROPINE
     Indication: EXTRAPYRAMIDAL DISORDER
     Route: 048
     Dates: start: 20210215
  2. HALOPERIDOL. [Concomitant]
     Active Substance: HALOPERIDOL
  3. RISPERIDONE. [Concomitant]
     Active Substance: RISPERIDONE

REACTIONS (2)
  - Extrapyramidal disorder [None]
  - Urinary hesitation [None]

NARRATIVE: CASE EVENT DATE: 20210315
